FAERS Safety Report 14984949 (Version 1)
Quarter: 2018Q2

REPORT INFORMATION
  Report Type: Spontaneous
  Country: US (occurrence: US)
  Receive Date: 20180607
  Receipt Date: 20180607
  Transmission Date: 20180711
  Serious: Yes (Hospitalization)
  Sender: FDA-Public Use
  Company Number: US-PFIZER INC-2018228861

PATIENT
  Age: 76 Year
  Sex: Female
  Weight: 96.16 kg

DRUGS (2)
  1. XELJANZ XR [Suspect]
     Active Substance: TOFACITINIB CITRATE
     Indication: RHEUMATOID ARTHRITIS
     Dosage: 11 MG, ONCE A DAY
     Route: 048
  2. HYDROCODONE [Concomitant]
     Active Substance: HYDROCODONE
     Indication: PAIN
     Dosage: UNK, AS NEEDED (10-325 MG TABLET, 1-2 TABLETS BY MOUTH 3 TIMES A DAY AS NEEDED)

REACTIONS (2)
  - Limb injury [Unknown]
  - Infection [Unknown]

NARRATIVE: CASE EVENT DATE: 201712
